FAERS Safety Report 10897588 (Version 1)
Quarter: 2015Q1

REPORT INFORMATION
  Report Type: Spontaneous
  Country: US (occurrence: None)
  Receive Date: 20150302
  Receipt Date: 20150302
  Transmission Date: 20150721
  Serious: Yes (Disabling)
  Sender: FDA-Public Use
  Company Number: None

PATIENT
  Age: 53 Year
  Sex: Female
  Weight: 59.88 kg

DRUGS (13)
  1. CHLORHEXIDINE GLUCONATE. [Suspect]
     Active Substance: CHLORHEXIDINE GLUCONATE
     Indication: GINGIVAL BLEEDING
     Route: 048
     Dates: start: 20150116, end: 20150226
  2. CITALOPRAM [Concomitant]
     Active Substance: CITALOPRAM HYDROBROMIDE
  3. ALKA SELTXER FOR COLDS [Concomitant]
  4. TUSSIN DM MAX NON DROWSY [Concomitant]
     Active Substance: DEXTROMETHORPHAN HYDROBROMIDE\GUAIFENESIN
  5. CHLORHEXIDINE GLUCONATE. [Suspect]
     Active Substance: CHLORHEXIDINE GLUCONATE
     Indication: GINGIVAL SWELLING
     Route: 048
     Dates: start: 20150116, end: 20150226
  6. ALKA-SELTZER PLUS NOS [Concomitant]
     Active Substance: ACETAMINOPHEN\ASPIRIN\CHLORPHENIRAMINE MALEATE\DEXTROMETHORPHAN HYDROBROMIDE\DIPHENHYDRAMINE HYDROCHLORIDE\DOXYLAMINE SUCCINATE\PHENYLEPHRINE BITARTRATE\PHENYLEPHRINE HYDROCHLORIDE
  7. KELP [Concomitant]
     Active Substance: KELP
  8. MULTI VITAMIN [Concomitant]
     Active Substance: VITAMINS
  9. BUSPIRONE [Concomitant]
     Active Substance: BUSPIRONE HYDROCHLORIDE
  10. VICKS MEDICATED CHEST RUB [Concomitant]
  11. COUGH DROPS [Concomitant]
  12. CHLORELLA VULGARIS [Concomitant]
     Active Substance: CHLORELLA VULGARIS
  13. SPIRILINI [Concomitant]

REACTIONS (9)
  - Ear congestion [None]
  - Rhinorrhoea [None]
  - Oropharyngeal pain [None]
  - Tongue disorder [None]
  - Sinus disorder [None]
  - Cough [None]
  - Increased upper airway secretion [None]
  - Ear discomfort [None]
  - Hypersensitivity [None]

NARRATIVE: CASE EVENT DATE: 20150203
